FAERS Safety Report 25625225 (Version 1)
Quarter: 2025Q3

REPORT INFORMATION
  Report Type: Spontaneous
  Country: CN (occurrence: CN)
  Receive Date: 20250731
  Receipt Date: 20250731
  Transmission Date: 20251021
  Serious: Yes (Hospitalization, Other)
  Sender: BEIGENE
  Company Number: CN-BEIGENE-BGN-2025-012287

PATIENT
  Age: 74 Year
  Weight: 66 kg

DRUGS (24)
  1. TISLELIZUMAB [Suspect]
     Active Substance: TISLELIZUMAB
     Indication: Squamous cell carcinoma of lung
     Route: 041
  2. TISLELIZUMAB [Suspect]
     Active Substance: TISLELIZUMAB
  3. TISLELIZUMAB [Suspect]
     Active Substance: TISLELIZUMAB
  4. TISLELIZUMAB [Suspect]
     Active Substance: TISLELIZUMAB
     Route: 041
  5. TISLELIZUMAB [Suspect]
     Active Substance: TISLELIZUMAB
     Route: 041
  6. TISLELIZUMAB [Suspect]
     Active Substance: TISLELIZUMAB
  7. TISLELIZUMAB [Suspect]
     Active Substance: TISLELIZUMAB
  8. TISLELIZUMAB [Suspect]
     Active Substance: TISLELIZUMAB
     Route: 041
  9. CARBOPLATIN [Suspect]
     Active Substance: CARBOPLATIN
     Indication: Squamous cell carcinoma of lung
  10. CARBOPLATIN [Suspect]
     Active Substance: CARBOPLATIN
  11. CARBOPLATIN [Suspect]
     Active Substance: CARBOPLATIN
     Route: 041
  12. CARBOPLATIN [Suspect]
     Active Substance: CARBOPLATIN
     Route: 041
  13. CARBOPLATIN [Suspect]
     Active Substance: CARBOPLATIN
  14. CARBOPLATIN [Suspect]
     Active Substance: CARBOPLATIN
  15. CARBOPLATIN [Suspect]
     Active Substance: CARBOPLATIN
     Route: 041
  16. CARBOPLATIN [Suspect]
     Active Substance: CARBOPLATIN
     Route: 041
  17. PACLITAXEL [Suspect]
     Active Substance: PACLITAXEL
     Indication: Squamous cell carcinoma of lung
  18. PACLITAXEL [Suspect]
     Active Substance: PACLITAXEL
  19. PACLITAXEL [Suspect]
     Active Substance: PACLITAXEL
     Route: 041
  20. PACLITAXEL [Suspect]
     Active Substance: PACLITAXEL
     Route: 041
  21. PACLITAXEL [Suspect]
     Active Substance: PACLITAXEL
  22. PACLITAXEL [Suspect]
     Active Substance: PACLITAXEL
  23. PACLITAXEL [Suspect]
     Active Substance: PACLITAXEL
     Route: 041
  24. PACLITAXEL [Suspect]
     Active Substance: PACLITAXEL
     Route: 041

REACTIONS (3)
  - Myelosuppression [Unknown]
  - Oxygen saturation decreased [Unknown]
  - Atrial fibrillation [Unknown]
